FAERS Safety Report 16134845 (Version 1)
Quarter: 2019Q1

REPORT INFORMATION
  Report Type: Spontaneous
  Country: FR (occurrence: FR)
  Receive Date: 20190329
  Receipt Date: 20190329
  Transmission Date: 20190418
  Serious: Yes (Hospitalization)
  Sender: FDA-Public Use
  Company Number: FR-JNJFOC-20190338366

PATIENT
  Age: 28 Year
  Sex: Female

DRUGS (6)
  1. XARELTO [Suspect]
     Active Substance: RIVAROXABAN
     Indication: PHLEBITIS DEEP
     Route: 048
     Dates: start: 20171016, end: 20171212
  2. CEFTRIAXONE SODIUM. [Concomitant]
     Active Substance: CEFTRIAXONE SODIUM
     Indication: LEUKOCYTURIA
     Route: 065
  3. OROKEN [Concomitant]
     Active Substance: CEFIXIME
     Indication: ESCHERICHIA URINARY TRACT INFECTION
     Route: 065
  4. KARDEGIC [Suspect]
     Active Substance: ASPIRIN DL-LYSINE
     Indication: PHLEBITIS DEEP
     Route: 048
     Dates: start: 20171213, end: 20171228
  5. INNOHEP [Concomitant]
     Active Substance: TINZAPARIN SODIUM
     Indication: PHLEBITIS DEEP
     Route: 065
  6. PLAVIX [Suspect]
     Active Substance: CLOPIDOGREL BISULFATE
     Indication: PHLEBITIS DEEP
     Route: 048
     Dates: start: 201611, end: 20171212

REACTIONS (1)
  - Abortion induced [Recovered/Resolved]

NARRATIVE: CASE EVENT DATE: 20180207
